FAERS Safety Report 6110714-3 (Version None)
Quarter: 2009Q1

REPORT INFORMATION
  Report Type: 
  Country: None (occurrence: None)
  Receive Date: 20090309
  Receipt Date: 20090224
  Transmission Date: 20090719
  Serious: Yes (Other)
  Sender: FDA-Public Use
  Company Number: 09-000293

PATIENT
  Age: 17 Year
  Sex: Male
  Weight: 53 kg

DRUGS (5)
  1. TACLONEX         (CALCIPOTRIENE 0.005%, [Suspect]
     Indication: PSORIASIS
     Dosage: TOPICAL
     Route: 061
     Dates: start: 20080701
  2. SORIATANE [Suspect]
     Indication: PSORIASIS
     Dosage: 50 MG, QD, ORAL
     Route: 048
     Dates: start: 20081112, end: 20081201
  3. DOVOEX (CALCIPOTRIOL) [Concomitant]
  4. ...................... [Concomitant]
  5. EXCEDRIN/ (ACETYLSALICYLIC ACID, CAFFEINE,PARACETAMOL, SALICYLAMIDE) [Concomitant]

REACTIONS (2)
  - MULTIPLE DRUG OVERDOSE [None]
  - SUICIDE ATTEMPT [None]
